FAERS Safety Report 6165893-9 (Version None)
Quarter: 2009Q2

REPORT INFORMATION
  Report Type: 
  Country: None (occurrence: None)
  Receive Date: 20090422
  Receipt Date: 20090408
  Transmission Date: 20091009
  Serious: Yes (Hospitalization, Other)
  Sender: FDA-Public Use
  Company Number: VAL_00252_2009

PATIENT
  Age: 37 Year
  Sex: Male
  Weight: 52 kg

DRUGS (6)
  1. ROCALTROL [Suspect]
     Indication: OSTEOPOROSIS
     Dosage: (0.25 ?G  ORAL), (0.5 ?G QD  ORAL),  (1 ?G 2X/WEEK ORAL),  (2 ?G 2X/WEEK ORAL),   (0.25 ?G 1X/WEEK O
     Route: 048
     Dates: start: 20060301, end: 20070101
  2. ROCALTROL [Suspect]
     Indication: OSTEOPOROSIS
     Dosage: (0.25 ?G  ORAL), (0.5 ?G QD  ORAL),  (1 ?G 2X/WEEK ORAL),  (2 ?G 2X/WEEK ORAL),   (0.25 ?G 1X/WEEK O
     Route: 048
     Dates: start: 20070101, end: 20080101
  3. ROCALTROL [Suspect]
     Indication: OSTEOPOROSIS
     Dosage: (0.25 ?G  ORAL), (0.5 ?G QD  ORAL),  (1 ?G 2X/WEEK ORAL),  (2 ?G 2X/WEEK ORAL),   (0.25 ?G 1X/WEEK O
     Route: 048
     Dates: start: 20080101, end: 20080501
  4. ROCALTROL [Suspect]
     Indication: OSTEOPOROSIS
     Dosage: (0.25 ?G  ORAL), (0.5 ?G QD  ORAL),  (1 ?G 2X/WEEK ORAL),  (2 ?G 2X/WEEK ORAL),   (0.25 ?G 1X/WEEK O
     Route: 048
     Dates: start: 20080501, end: 20090131
  5. ROCALTROL [Suspect]
     Indication: OSTEOPOROSIS
     Dosage: (0.25 ?G  ORAL), (0.5 ?G QD  ORAL),  (1 ?G 2X/WEEK ORAL),  (2 ?G 2X/WEEK ORAL),   (0.25 ?G 1X/WEEK O
     Route: 048
     Dates: start: 20090219
  6. CALCIUM GLUCONATE [Concomitant]

REACTIONS (4)
  - ABASIA [None]
  - AZOTAEMIA [None]
  - CONDITION AGGRAVATED [None]
  - RENAL TRANSPLANT [None]
